FAERS Safety Report 21418682 (Version 1)
Quarter: 2022Q4

REPORT INFORMATION
  Report Type: Spontaneous
  Country: DE (occurrence: DE)
  Receive Date: 20221006
  Receipt Date: 20221006
  Transmission Date: 20230112
  Serious: Yes (Hospitalization)
  Sender: FDA-Public Use
  Company Number: DE-ADRED-08330-01

PATIENT
  Age: 57 Year
  Sex: Male
  Weight: 80 kg

DRUGS (2)
  1. SERTRALINE [Interacting]
     Active Substance: SERTRALINE HYDROCHLORIDE
     Indication: Product used for unknown indication
     Dosage: 50 MILLIGRAM, BID, 1-0-1-0, TABLET
     Route: 048
  2. SULPIRIDE [Interacting]
     Active Substance: SULPIRIDE
     Indication: Product used for unknown indication
     Dosage: 50 MILLIGRAM, BID, 1-0-1-0, CAPSULE
     Route: 048

REACTIONS (3)
  - Product prescribing error [Unknown]
  - Labelled drug-drug interaction medication error [Unknown]
  - Dizziness [Unknown]

NARRATIVE: CASE EVENT DATE: 20210719
